FAERS Safety Report 8211466-3 (Version None)
Quarter: 2012Q1

REPORT INFORMATION
  Report Type: 
  Country: None (occurrence: None)
  Receive Date: 20120315
  Receipt Date: 20120307
  Transmission Date: 20120608
  Serious: Yes (Hospitalization, Other)
  Sender: FDA-Public Use
  Company Number: BR-SANOFI-AVENTIS-2012SA015621

PATIENT
  Age: 28 Year
  Sex: Female
  Weight: 63.2 kg

DRUGS (5)
  1. LANTUS [Suspect]
     Route: 065
  2. AUTOPEN 24 [Suspect]
     Indication: DEVICE THERAPY
     Dates: start: 20050101
  3. LANTUS [Suspect]
     Route: 065
     Dates: start: 20120101
  4. LANTUS [Suspect]
     Indication: TYPE 1 DIABETES MELLITUS
     Route: 065
     Dates: start: 20050101
  5. LANTUS [Suspect]
     Route: 065
     Dates: start: 20120201

REACTIONS (4)
  - DIABETES MELLITUS INADEQUATE CONTROL [None]
  - MATERNAL EXPOSURE DURING PREGNANCY [None]
  - VOMITING [None]
  - HAEMORRHAGE [None]
